FAERS Safety Report 6169032-X (Version None)
Quarter: 2009Q2

REPORT INFORMATION
  Report Type: 
  Country: None (occurrence: None)
  Receive Date: 20090427
  Receipt Date: 20080908
  Transmission Date: 20091009
  Serious: Yes (Other)
  Sender: FDA-Public Use
  Company Number: US-PFIZER INC-2008075832

PATIENT
  Sex: Male
  Weight: 77.1 kg

DRUGS (4)
  1. DILANTIN [Suspect]
     Indication: CONVULSION
     Dosage: 100 MG, UNK
     Route: 048
     Dates: start: 19960101
  2. DILANTIN [Suspect]
     Dosage: 50 MG, UNK
     Route: 048
     Dates: start: 19960101
  3. MULTI-VITAMINS [Concomitant]
  4. TYLENOL W/ CODEINE NO. 3 [Concomitant]
     Indication: ARTHRALGIA

REACTIONS (7)
  - COGNITIVE DISORDER [None]
  - CONFUSIONAL STATE [None]
  - CONVULSION [None]
  - CORONARY ARTERY BYPASS [None]
  - MEDICATION ERROR [None]
  - PRODUCT QUALITY ISSUE [None]
  - SOMNOLENCE [None]
